FAERS Safety Report 6392090-4 (Version None)
Quarter: 2009Q4

REPORT INFORMATION
  Report Type: 
  Country: None (occurrence: None)
  Receive Date: 20091007
  Receipt Date: 20090929
  Transmission Date: 20100525
  Serious: Yes (Hospitalization)
  Sender: FDA-Public Use
  Company Number: US-MERCK-0909USA03742

PATIENT
  Age: 62 Year
  Sex: Female

DRUGS (7)
  1. INVANZ [Suspect]
     Indication: INFECTION PROPHYLAXIS
     Route: 042
     Dates: start: 20090814
  2. VANCOMYCIN [Concomitant]
     Route: 065
  3. PREDNISONE [Concomitant]
     Route: 065
  4. LISINOPRIL [Concomitant]
     Route: 065
  5. ARAVA [Concomitant]
     Route: 065
  6. DARVOCET-N 100 [Concomitant]
     Route: 065
  7. LEVOTHYROXINE SODIUM [Concomitant]
     Route: 065

REACTIONS (2)
  - AMNESIA [None]
  - CHEST PAIN [None]
